FAERS Safety Report 21892699 (Version 2)
Quarter: 2023Q2

REPORT INFORMATION
  Report Type: Spontaneous
  Country: JP (occurrence: JP)
  Receive Date: 20230120
  Receipt Date: 20230407
  Transmission Date: 20230721
  Serious: Yes (Death)
  Sender: FDA-Public Use
  Company Number: JP-Eisai-202213289_LEN_P_1

PATIENT
  Age: 63 Year
  Sex: Male
  Weight: 54 kg

DRUGS (1)
  1. LENVATINIB [Suspect]
     Active Substance: LENVATINIB
     Indication: Anaplastic thyroid cancer
     Route: 048
     Dates: start: 20220118

REACTIONS (1)
  - Traumatic haemothorax [Fatal]

NARRATIVE: CASE EVENT DATE: 20220605
